FAERS Safety Report 16483058 (Version 1)
Quarter: 2019Q2

REPORT INFORMATION
  Report Type: Spontaneous
  Country: US (occurrence: US)
  Receive Date: 20190515
  Receipt Date: 20190515
  Transmission Date: 20190711
  Serious: Yes (Other)
  Sender: FDA-Public Use
  Company Number: None

PATIENT
  Age: 68 Year
  Sex: Male
  Weight: 86.18 kg

DRUGS (5)
  1. LISINIPRIL [Concomitant]
     Active Substance: LISINOPRIL
  2. COENZYME Q10 [Concomitant]
     Active Substance: UBIDECARENONE
  3. ASPIRIN. [Concomitant]
     Active Substance: ASPIRIN
  4. MULTI VITAMINS [Concomitant]
     Active Substance: VITAMINS
  5. ZETIA [Suspect]
     Active Substance: EZETIMIBE
     Indication: BLOOD CHOLESTEROL INCREASED
     Dosage: ?          QUANTITY:1 DF DOSAGE FORM;?
     Route: 048
     Dates: start: 20181108, end: 20190116

REACTIONS (3)
  - Hypoaesthesia [None]
  - Peripheral vascular disorder [None]
  - Muscle spasms [None]

NARRATIVE: CASE EVENT DATE: 20190116
